FAERS Safety Report 8209537-0 (Version None)
Quarter: 2012Q1

REPORT INFORMATION
  Report Type: 
  Country: None (occurrence: None)
  Receive Date: 20120314
  Receipt Date: 20120309
  Transmission Date: 20120608
  Serious: Yes (Hospitalization)
  Sender: FDA-Public Use
  Company Number: US-VERTEX PHARMACEUTICALS INC.-AE-2011-004686

PATIENT
  Age: 62 Year
  Sex: Female

DRUGS (7)
  1. INCIVEK [Suspect]
     Indication: HEPATITIS C
     Route: 048
     Dates: start: 20110922, end: 20111006
  2. LISINOPRIL [Concomitant]
  3. PEGINTERFERON [Concomitant]
     Indication: HEPATITIS C
  4. NEXIUM [Concomitant]
  5. ATENOLOL [Concomitant]
  6. COPEGUS [Concomitant]
  7. RIBAVIRIN [Concomitant]
     Indication: HEPATITIS C

REACTIONS (1)
  - AMMONIA INCREASED [None]
